FAERS Safety Report 17720441 (Version 1)
Quarter: 2020Q2

REPORT INFORMATION
  Report Type: Spontaneous
  Country: US (occurrence: US)
  Receive Date: 20200428
  Receipt Date: 20200428
  Transmission Date: 20200714
  Serious: No
  Sender: FDA-Public Use
  Company Number: US-GILEAD-2020-0460805

PATIENT
  Age: 68 Year
  Sex: Female
  Weight: 84.4 kg

DRUGS (6)
  1. REVATIO [Concomitant]
     Active Substance: SILDENAFIL CITRATE
  2. TREPROSTINIL SODIUM [Suspect]
     Active Substance: TREPROSTINIL SODIUM
     Indication: PULMONARY ARTERIAL HYPERTENSION
     Dosage: UNK
     Route: 055
     Dates: start: 20170425
  3. AMBRISENTAN [Suspect]
     Active Substance: AMBRISENTAN
     Indication: PULMONARY ARTERIAL HYPERTENSION
     Dosage: UNK
     Route: 065
  4. TREPROSTINIL SODIUM [Suspect]
     Active Substance: TREPROSTINIL SODIUM
     Dosage: UNK
     Route: 055
  5. TREPROSTINIL SODIUM [Suspect]
     Active Substance: TREPROSTINIL SODIUM
     Dosage: 18-54, QID
     Route: 055
  6. TYVASO [Suspect]
     Active Substance: TREPROSTINIL
     Indication: PULMONARY ARTERIAL HYPERTENSION
     Dosage: 18-54 ?G, QID
     Route: 055
     Dates: start: 20170425

REACTIONS (5)
  - Hernia [Unknown]
  - Sleep apnoea syndrome [Unknown]
  - Insomnia [Unknown]
  - Weight decreased [Unknown]
  - Fluid retention [Unknown]
